FAERS Safety Report 8798345 (Version 2)
Quarter: 2015Q1

REPORT INFORMATION
  Report Type: Report from Study
  Country: US (occurrence: US)
  Receive Date: 20120920
  Receipt Date: 20150303
  Transmission Date: 20150721
  Serious: Yes (Death)
  Sender: FDA-Public Use
  Company Number: US-ROCHE-1102878

PATIENT
  Age: 76 Year
  Sex: Male
  Weight: 73.18 kg

DRUGS (11)
  1. AVASTIN [Suspect]
     Active Substance: BEVACIZUMAB
     Indication: COLON CANCER
     Dosage: IN 100 ML NS OVER 30 MINUTES
     Route: 042
     Dates: start: 20050207
  2. AVASTIN [Suspect]
     Active Substance: BEVACIZUMAB
     Indication: HEPATIC CANCER
  3. CAMPTOSAR [Concomitant]
     Active Substance: IRINOTECAN HYDROCHLORIDE
     Dosage: IN 500 ML NS OVER 90 MINUTES
     Route: 042
     Dates: start: 20050131
  4. ALOXI [Concomitant]
     Active Substance: PALONOSETRON HYDROCHLORIDE
     Dosage: IN 50 ML NS OVER 15 MINUTES
     Route: 065
     Dates: start: 20050131
  5. AVASTIN [Suspect]
     Active Substance: BEVACIZUMAB
     Indication: NEOPLASM MALIGNANT
  6. AVASTIN [Suspect]
     Active Substance: BEVACIZUMAB
     Indication: HEPATOBLASTOMA
  7. PROCRIT [Concomitant]
     Active Substance: ERYTHROPOIETIN
     Dosage: 40,000 UNITS/ML
     Route: 042
  8. LEUCOVORIN [Concomitant]
     Active Substance: LEUCOVORIN
     Dosage: IN 50 ML NS OVER 15 MINUTES
     Route: 065
     Dates: start: 20050131
  9. DECADRON [Concomitant]
     Active Substance: DEXAMETHASONE
     Route: 042
     Dates: start: 20050131
  10. ATROPINE [Concomitant]
     Active Substance: ATROPINE
     Dosage: IN 50 ML NS OVER 15 MINUTES
     Route: 065
     Dates: start: 20050131
  11. 5-FLUOROURACIL [Concomitant]
     Active Substance: FLUOROURACIL
     Dosage: IN  50 ML NS OVER 15 MINUTES
     Route: 065

REACTIONS (1)
  - Death [Fatal]

NARRATIVE: CASE EVENT DATE: 200503
